FAERS Safety Report 20144357 (Version 1)
Quarter: 2021Q4

REPORT INFORMATION
  Report Type: Spontaneous
  Country: SE (occurrence: SE)
  Receive Date: 20211203
  Receipt Date: 20211203
  Transmission Date: 20220303
  Serious: Yes (Disabling)
  Sender: FDA-Public Use
  Company Number: None

PATIENT
  Age: 32 Year
  Sex: Female
  Weight: 63 kg

DRUGS (1)
  1. NUVARING [Suspect]
     Active Substance: ETHINYL ESTRADIOL\ETONOGESTREL
     Indication: Polycystic ovaries
     Dosage: 0.120 MG/0.015 MG PER 24 HOURS. DOSING ACCORDING TO INSTRUCTIONS (CONCENTRATION: 0.120 MG/0.015 MG)
     Route: 067
     Dates: start: 20071228, end: 20170301

REACTIONS (1)
  - Otosclerosis [Recovered/Resolved with Sequelae]

NARRATIVE: CASE EVENT DATE: 20140101
